FAERS Safety Report 7341901-4 (Version None)
Quarter: 2011Q1

REPORT INFORMATION
  Report Type: 
  Country: None (occurrence: None)
  Receive Date: 20110309
  Receipt Date: 20110228
  Transmission Date: 20110831
  Serious: Yes (Other)
  Sender: FDA-Public Use
  Company Number: US-CELGENEUS-163-21880-11030131

PATIENT
  Sex: Male

DRUGS (9)
  1. ACYCLOVIR [Concomitant]
     Route: 065
     Dates: start: 20100101
  2. LOVENOX [Concomitant]
     Indication: PULMONARY EMBOLISM
     Route: 065
     Dates: start: 20110101
  3. OMEPRAZOLE [Concomitant]
     Route: 065
  4. REVLIMID [Suspect]
     Dosage: 10 MILLIGRAM
     Route: 048
     Dates: start: 20100805
  5. NITROFURANTOIN [Concomitant]
     Route: 065
     Dates: start: 20110101
  6. PREDNISONE [Concomitant]
     Route: 048
     Dates: start: 20101101, end: 20110101
  7. CODEINE [Concomitant]
     Route: 065
     Dates: start: 20110101
  8. REVLIMID [Suspect]
     Dosage: 10 MILLIGRAM
     Route: 048
     Dates: start: 20101104, end: 20101123
  9. BACTRIM DS [Concomitant]
     Indication: INFECTION
     Route: 065

REACTIONS (4)
  - LYMPHADENOPATHY [None]
  - CHRONIC LYMPHOCYTIC LEUKAEMIA [None]
  - SPLENOMEGALY [None]
  - ANAEMIA [None]
